FAERS Safety Report 5905928-9 (Version None)
Quarter: 2008Q4

REPORT INFORMATION
  Report Type: 
  Country: None (occurrence: None)
  Receive Date: 20081001
  Receipt Date: 20081001
  Transmission Date: 20090506
  Serious: Yes (Other)
  Sender: FDA-Public Use
  Company Number: None

PATIENT
  Age: 24 Year
  Sex: Male
  Weight: 74.8435 kg

DRUGS (2)
  1. SEROQUEL [Suspect]
     Indication: ANXIETY
     Dosage: 600MG ONCE DAILY AT HS PO
     Route: 048
     Dates: start: 20071101, end: 20080930
  2. SEROQUEL [Suspect]
     Indication: BIPOLAR DISORDER
     Dosage: 600MG ONCE DAILY AT HS PO
     Route: 048
     Dates: start: 20071101, end: 20080930

REACTIONS (2)
  - FATIGUE [None]
  - SLEEP-RELATED EATING DISORDER [None]
